FAERS Safety Report 9553620 (Version 1)
Quarter: 2013Q3

REPORT INFORMATION
  Report Type: Spontaneous
  Country: US (occurrence: None)
  Receive Date: 20130924
  Receipt Date: 20130924
  Transmission Date: 20140515
  Serious: Yes (Life-Threatening, Other)
  Sender: FDA-Public Use
  Company Number: None

PATIENT
  Age: 74 Year
  Sex: Female
  Weight: 72.58 kg

DRUGS (1)
  1. CARVEDILOL [Suspect]
     Indication: CARDIAC FAILURE
     Dosage: TWO 6/25 MG DAILY, TWICE DAILY, TAKEN BY MOUTH
     Dates: start: 20030101, end: 20130923

REACTIONS (2)
  - Rash [None]
  - Poisoning [None]
